FAERS Safety Report 13721090 (Version 1)
Quarter: 2017Q3

REPORT INFORMATION
  Report Type: Spontaneous
  Country: US (occurrence: US)
  Receive Date: 20170706
  Receipt Date: 20170706
  Transmission Date: 20171127
  Serious: No
  Sender: FDA-Public Use
  Company Number: None

PATIENT
  Age: 75 Year
  Sex: Female
  Weight: 79 kg

DRUGS (11)
  1. MAGNESIUM [Concomitant]
     Active Substance: MAGNESIUM
  2. METRONIDAZOLE 500MG [Suspect]
     Active Substance: METRONIDAZOLE
     Indication: DIVERTICULITIS
     Dosage: 500MG 1 TAB 3 TIMES DAILY 2-3 TIMES DAILY BY MOUTH
     Route: 048
     Dates: start: 20170616, end: 20170622
  3. HYDROCHLOROLTIAZIDE [Concomitant]
  4. HYDRALAZINE [Concomitant]
     Active Substance: HYDRALAZINE HYDROCHLORIDE
  5. CLOPIDOGREL [Concomitant]
     Active Substance: CLOPIDOGREL BISULFATE
  6. ATENOLOL. [Concomitant]
     Active Substance: ATENOLOL
  7. ALLPURINOL [Concomitant]
     Active Substance: ALLOPURINOL
  8. SPIRONOLACTONE. [Concomitant]
     Active Substance: SPIRONOLACTONE
  9. ATORVASTATIN [Concomitant]
     Active Substance: ATORVASTATIN
  10. BENICAR [Concomitant]
     Active Substance: OLMESARTAN MEDOXOMIL
  11. OMEPRAZOLE. [Concomitant]
     Active Substance: OMEPRAZOLE

REACTIONS (11)
  - Disorientation [None]
  - Weight decreased [None]
  - Dysgeusia [None]
  - Somnolence [None]
  - Headache [None]
  - Nausea [None]
  - Dizziness [None]
  - Abdominal pain upper [None]
  - Irritability [None]
  - Confusional state [None]
  - Malaise [None]

NARRATIVE: CASE EVENT DATE: 20170616
